FAERS Safety Report 14343930 (Version 1)
Quarter: 2017Q4

REPORT INFORMATION
  Report Type: Spontaneous
  Country: US (occurrence: US)
  Receive Date: 20171229
  Receipt Date: 20171229
  Transmission Date: 20180321
  Serious: Yes (Death)
  Sender: FDA-Public Use
  Company Number: None

PATIENT
  Age: 13 Year
  Sex: Male

DRUGS (1)
  1. GRANISETRON 1MG TAB [Suspect]
     Active Substance: GRANISETRON
     Indication: ACUTE LYMPHOCYTIC LEUKAEMIA
     Route: 048
     Dates: start: 201608, end: 201704

REACTIONS (1)
  - Death [None]

NARRATIVE: CASE EVENT DATE: 201704
